FAERS Safety Report 17662615 (Version 1)
Quarter: 2020Q2

REPORT INFORMATION
  Report Type: Spontaneous
  Country: US (occurrence: US)
  Receive Date: 20200413
  Receipt Date: 20200413
  Transmission Date: 20200713
  Serious: No
  Sender: FDA-Public Use
  Company Number: US-NEUROCRINE BIOSCIENCES INC.-2020NBI01133

PATIENT
  Sex: Female

DRUGS (2)
  1. INGREZZA [Suspect]
     Active Substance: VALBENAZINE
     Indication: PRODUCT USED FOR UNKNOWN INDICATION
     Dates: start: 202001, end: 2020
  2. INGREZZA [Suspect]
     Active Substance: VALBENAZINE
     Dates: start: 202002, end: 2020

REACTIONS (1)
  - Bradykinesia [Unknown]

NARRATIVE: CASE EVENT DATE: 2020
